FAERS Safety Report 14985945 (Version 1)
Quarter: 2018Q2

REPORT INFORMATION
  Report Type: Spontaneous
  Country: US (occurrence: US)
  Receive Date: 20180516
  Receipt Date: 20180516
  Transmission Date: 20180711
  Serious: No
  Sender: FDA-Public Use
  Company Number: None

PATIENT
  Age: 59 Year
  Sex: Female

DRUGS (1)
  1. GLATIRAMER 40MG/ML MYLAN [Suspect]
     Active Substance: GLATIRAMER
     Indication: MULTIPLE SCLEROSIS
     Route: 058
     Dates: start: 20180307

REACTIONS (4)
  - Erythema [None]
  - Pruritus [None]
  - Feeling hot [None]
  - Urticaria [None]

NARRATIVE: CASE EVENT DATE: 20180502
